FAERS Safety Report 10029454 (Version 1)
Quarter: 2014Q1

REPORT INFORMATION
  Report Type: Report from Study
  Country: BR (occurrence: BR)
  Receive Date: 20140322
  Receipt Date: 20140322
  Transmission Date: 20141002
  Serious: Yes (Hospitalization)
  Sender: FDA-Public Use
  Company Number: PHHY2014BR034207

PATIENT
  Age: 45 Year
  Sex: Female
  Weight: 49 kg

DRUGS (1)
  1. GILENYA [Suspect]
     Indication: MULTIPLE SCLEROSIS
     Dosage: 1 DF, DAILY
     Route: 048

REACTIONS (3)
  - Appendicitis [Recovering/Resolving]
  - Peritonitis [Recovering/Resolving]
  - Malaise [Not Recovered/Not Resolved]
